FAERS Safety Report 10305726 (Version 1)
Quarter: 2014Q3

REPORT INFORMATION
  Report Type: Spontaneous
  Country: US (occurrence: None)
  Receive Date: 20140711
  Receipt Date: 20140711
  Transmission Date: 20150326
  Serious: Yes (Hospitalization)
  Sender: FDA-Public Use
  Company Number: None

PATIENT
  Age: 35 Year
  Sex: Female
  Weight: 83.92 kg

DRUGS (1)
  1. VENOFER [Suspect]
     Active Substance: IRON SUCROSE
     Indication: IRON DEFICIENCY
     Dosage: INFUSION  ONCE  INTO A VEIN
     Route: 042
     Dates: start: 20140709, end: 20140709

REACTIONS (16)
  - Dizziness [None]
  - Arthralgia [None]
  - Muscle spasms [None]
  - Blood pressure increased [None]
  - Nausea [None]
  - Abdominal pain [None]
  - Blood urine present [None]
  - Injection site streaking [None]
  - Infusion site inflammation [None]
  - Pyrexia [None]
  - Blood pressure decreased [None]
  - Infusion related reaction [None]
  - Pruritus generalised [None]
  - Infusion site pain [None]
  - Myalgia [None]
  - Chest pain [None]

NARRATIVE: CASE EVENT DATE: 20140709
